FAERS Safety Report 24747124 (Version 1)
Quarter: 2024Q4

REPORT INFORMATION
  Report Type: Spontaneous
  Country: BD (occurrence: BD)
  Receive Date: 20241218
  Receipt Date: 20241218
  Transmission Date: 20250115
  Serious: Yes (Hospitalization)
  Sender: STRIDES
  Company Number: BD-STRIDES ARCOLAB LIMITED-2024SP016643

PATIENT
  Age: 35 Year
  Sex: Female

DRUGS (1)
  1. METHOTREXATE [Suspect]
     Active Substance: METHOTREXATE
     Indication: Product used for unknown indication
     Dosage: 10 MILLIGRAM, QD
     Route: 048
     Dates: start: 2024

REACTIONS (13)
  - Mucosal disorder [Recovered/Resolved]
  - Severe cutaneous adverse reaction [Recovered/Resolved]
  - Epistaxis [Recovered/Resolved]
  - Accidental overdose [Unknown]
  - Wrong product administered [Unknown]
  - Dehydration [Recovered/Resolved]
  - Gastrointestinal haemorrhage [Recovered/Resolved]
  - Pancytopenia [Recovered/Resolved]
  - Hepatic function abnormal [Recovered/Resolved]
  - Renal impairment [Recovered/Resolved]
  - Dyspnoea [Recovered/Resolved]
  - Anaemia [Recovered/Resolved]
  - Toxicity to various agents [Recovered/Resolved]

NARRATIVE: CASE EVENT DATE: 20240101
